FAERS Safety Report 8120651-0 (Version None)
Quarter: 2012Q1

REPORT INFORMATION
  Report Type: 
  Country: None (occurrence: None)
  Receive Date: 20120207
  Receipt Date: 20120131
  Transmission Date: 20120608
  Serious: Yes (Other)
  Sender: FDA-Public Use
  Company Number: US-ROCHE-1035948

PATIENT
  Age: 61 Year
  Sex: Male

DRUGS (10)
  1. ENBREL [Suspect]
     Indication: RHEUMATOID ARTHRITIS
     Dates: start: 20040301, end: 20041001
  2. CYCLOPHOSPHAMIDE [Suspect]
     Indication: RETINAL VASCULITIS
     Dates: start: 20041201, end: 20050527
  3. HUMIRA [Suspect]
     Indication: RHEUMATOID ARTHRITIS
     Route: 058
     Dates: start: 20041101, end: 20041201
  4. REMICADE [Suspect]
     Indication: RHEUMATOID ARTHRITIS
     Dates: start: 20050526, end: 20061211
  5. ARAVA [Suspect]
     Indication: PRODUCT USED FOR UNKNOWN INDICATION
     Dates: start: 20050401, end: 20070101
  6. TOCILIZUMAB [Suspect]
     Indication: RHEUMATOID ARTHRITIS
  7. SOLU-MEDROL [Suspect]
     Indication: RETINAL VASCULITIS
     Dosage: 2 BOLUS
     Dates: start: 20041201
  8. RITUXIMAB [Suspect]
     Indication: RHEUMATOID ARTHRITIS
     Dates: start: 20070201, end: 20110201
  9. METHOTREXATE SODIUM [Concomitant]
     Dates: end: 20050201
  10. PREDNISONE TAB [Concomitant]

REACTIONS (1)
  - BLADDER CANCER [None]
